FAERS Safety Report 11132988 (Version 2)
Quarter: 2015Q3

REPORT INFORMATION
  Report Type: Spontaneous
  Country: US (occurrence: US)
  Receive Date: 20150522
  Receipt Date: 20150702
  Transmission Date: 20151125
  Serious: Yes (Other)
  Sender: FDA-Public Use
  Company Number: US-ASTRAZENECA-2014SE69654

PATIENT
  Age: 65 Year
  Sex: Male
  Weight: 85.3 kg

DRUGS (19)
  1. AVANDIA [Concomitant]
     Active Substance: ROSIGLITAZONE MALEATE
     Route: 048
     Dates: start: 20060224
  2. TRIAMTERENE/ HCTZ [Concomitant]
     Dosage: 37.5/2.5, DAILY
     Route: 048
     Dates: start: 20061004
  3. SYNTHROID [Concomitant]
     Active Substance: LEVOTHYROXINE SODIUM
     Route: 048
     Dates: start: 20130422
  4. CEPHALEXIN. [Concomitant]
     Active Substance: CEPHALEXIN
     Route: 048
     Dates: start: 20121020
  5. BENICAR [Concomitant]
     Active Substance: OLMESARTAN MEDOXOMIL
     Route: 048
     Dates: start: 20060224
  6. METFORMIN HCL [Concomitant]
     Active Substance: METFORMIN HYDROCHLORIDE
     Route: 048
     Dates: start: 20071010
  7. BYETTA [Suspect]
     Active Substance: EXENATIDE
     Route: 065
     Dates: start: 20071112
  8. BYETTA [Suspect]
     Active Substance: EXENATIDE
     Route: 058
     Dates: start: 20080105
  9. LIPITOR [Concomitant]
     Active Substance: ATORVASTATIN CALCIUM
     Route: 048
     Dates: start: 20071010
  10. ACTOS [Concomitant]
     Active Substance: PIOGLITAZONE HYDROCHLORIDE
     Route: 048
     Dates: start: 20071010
  11. BYETTA [Suspect]
     Active Substance: EXENATIDE
     Dosage: UNK
     Route: 065
     Dates: start: 20070427, end: 201010
  12. BYETTA [Suspect]
     Active Substance: EXENATIDE
     Route: 058
     Dates: start: 20100917
  13. GLYBURIDE. [Concomitant]
     Active Substance: GLYBURIDE
     Route: 048
     Dates: start: 20061004
  14. ASPIRIN ENTERIC COATED [Concomitant]
     Active Substance: ASPIRIN
     Route: 048
     Dates: start: 20100909
  15. BYETTA [Suspect]
     Active Substance: EXENATIDE
     Route: 058
     Dates: start: 20091223
  16. TRIGLIDE/ FENOFIBRATE [Concomitant]
     Route: 048
     Dates: start: 20070130
  17. JANUVIA [Concomitant]
     Active Substance: SITAGLIPTIN PHOSPHATE
     Dates: start: 20111126
  18. CARVEDILOL. [Concomitant]
     Active Substance: CARVEDILOL
     Route: 048
     Dates: start: 20121102
  19. OMEPRAZOLE. [Concomitant]
     Active Substance: OMEPRAZOLE
     Route: 048
     Dates: start: 20121020

REACTIONS (7)
  - Hypothyroidism [Unknown]
  - Medullary thyroid cancer [Unknown]
  - Thyroiditis chronic [Unknown]
  - Thyroid neoplasm [Unknown]
  - Papillary thyroid cancer [Unknown]
  - Huerthle cell carcinoma [Unknown]
  - Goitre [Unknown]

NARRATIVE: CASE EVENT DATE: 2012
